FAERS Safety Report 13708037 (Version 1)
Quarter: 2017Q2

REPORT INFORMATION
  Report Type: Spontaneous
  Country: US (occurrence: US)
  Receive Date: 20170630
  Receipt Date: 20170630
  Transmission Date: 20170830
  Serious: No
  Sender: FDA-Public Use
  Company Number: US-PRINSTON PHARMACEUTICAL INC.-2017PRN00102

PATIENT
  Age: 75 Year
  Sex: Female
  Weight: 68.27 kg

DRUGS (9)
  1. VALSARTAN. [Suspect]
     Active Substance: VALSARTAN
     Indication: HYPERTENSION
     Dosage: UNK, 2X/DAY
     Route: 048
     Dates: start: 201605
  2. JANUVIA [Concomitant]
     Active Substance: SITAGLIPTIN PHOSPHATE
  3. FUROSEMIDE. [Concomitant]
     Active Substance: FUROSEMIDE
     Dosage: 20 MG, 1X/DAY
  4. MAGNESIUM OXIDE. [Concomitant]
     Active Substance: MAGNESIUM OXIDE
     Dosage: 40 MG, 1X/DAY
  5. VALSARTAN. [Suspect]
     Active Substance: VALSARTAN
     Dosage: UNK SHE WENT BACK TO 40 MG STRENGTH, 4 IN THE AM, 2 IN THE EVENING
  6. VALSARTAN. [Suspect]
     Active Substance: VALSARTAN
     Indication: HYPERTENSION
     Dosage: 80 MG, UNK
     Route: 048
     Dates: start: 201606
  7. CLONIDINE. [Concomitant]
     Active Substance: CLONIDINE
  8. LEVEMIR [Concomitant]
     Active Substance: INSULIN DETEMIR
  9. GABAPENTIN. [Concomitant]
     Active Substance: GABAPENTIN
     Dosage: 300 MG, 2X/DAY

REACTIONS (3)
  - Pruritus [Recovered/Resolved]
  - Rash [Recovered/Resolved]
  - Drug ineffective [Recovered/Resolved]

NARRATIVE: CASE EVENT DATE: 201605
